FAERS Safety Report 12632929 (Version 1)
Quarter: 2016Q3

REPORT INFORMATION
  Report Type: Spontaneous
  Country: US (occurrence: None)
  Receive Date: 20160808
  Receipt Date: 20160808
  Transmission Date: 20161109
  Serious: Yes (Hospitalization)
  Sender: FDA-Public Use
  Company Number: None

PATIENT
  Age: 43 Year
  Sex: Female
  Weight: 104.33 kg

DRUGS (4)
  1. TYLENOL [Concomitant]
     Active Substance: ACETAMINOPHEN
  2. ALBUTEROL. [Concomitant]
     Active Substance: ALBUTEROL
  3. PROAIR HFA [Suspect]
     Active Substance: ALBUTEROL SULFATE
     Indication: MULTIPLE ALLERGIES
     Dosage: 200 PUFF(S)
     Route: 055
     Dates: start: 20160802, end: 20160806
  4. PROAIR HFA [Suspect]
     Active Substance: ALBUTEROL SULFATE
     Indication: ASTHMA
     Dosage: 200 PUFF(S)
     Route: 055
     Dates: start: 20160802, end: 20160806

REACTIONS (2)
  - Drug ineffective [None]
  - Asthma [None]

NARRATIVE: CASE EVENT DATE: 20160806
